FAERS Safety Report 12176102 (Version 1)
Quarter: 2016Q1

REPORT INFORMATION
  Report Type: Spontaneous
  Country: JP (occurrence: JP)
  Receive Date: 20160314
  Receipt Date: 20160314
  Transmission Date: 20160526
  Serious: Yes (Death, Other)
  Sender: FDA-Public Use
  Company Number: JP-ROCHE-1723361

PATIENT
  Age: 62 Year
  Sex: Male

DRUGS (2)
  1. PREDNISOLONE. [Suspect]
     Active Substance: PREDNISOLONE
     Indication: CASTLEMAN^S DISEASE
     Route: 048
  2. ACTEMRA [Suspect]
     Active Substance: TOCILIZUMAB
     Indication: CASTLEMAN^S DISEASE
     Route: 041
     Dates: start: 20151127, end: 20151224

REACTIONS (7)
  - Blood potassium increased [Unknown]
  - Hyponatraemia [Unknown]
  - Hepatic function abnormal [Unknown]
  - Renal vessel disorder [Unknown]
  - Epstein-Barr virus infection [Fatal]
  - Epstein-Barr virus associated lymphoproliferative disorder [Unknown]
  - Blood albumin decreased [Unknown]

NARRATIVE: CASE EVENT DATE: 20151127
